FAERS Safety Report 21403762 (Version 1)
Quarter: 2022Q4

REPORT INFORMATION
  Report Type: Report from Study
  Country: US (occurrence: US)
  Receive Date: 20221003
  Receipt Date: 20221003
  Transmission Date: 20230112
  Serious: No
  Sender: FDA-Public Use
  Company Number: US-ABBVIE-4135809

PATIENT
  Age: 45 Year
  Sex: Female

DRUGS (1)
  1. SKYRIZI [Suspect]
     Active Substance: RISANKIZUMAB-RZAA
     Indication: Psoriasis
     Dosage: ONCE AT WEEK 4
     Route: 058
     Dates: start: 20220822

REACTIONS (1)
  - Conjunctivitis [Recovering/Resolving]

NARRATIVE: CASE EVENT DATE: 20220923
